FAERS Safety Report 21389870 (Version 1)
Quarter: 2022Q3

REPORT INFORMATION
  Report Type: Report from Study
  Country: ES (occurrence: ES)
  Receive Date: 20220929
  Receipt Date: 20220929
  Transmission Date: 20221026
  Serious: Yes (Other)
  Sender: FDA-Public Use
  Company Number: ES-UCBSA-2022055657

PATIENT

DRUGS (1)
  1. CERTOLIZUMAB PEGOL [Suspect]
     Active Substance: CERTOLIZUMAB PEGOL
     Indication: Uveitis
     Dosage: UNK

REACTIONS (3)
  - Eye disorder [Unknown]
  - Pre-existing condition improved [Unknown]
  - Product use in unapproved indication [Unknown]
